FAERS Safety Report 8287326-9 (Version None)
Quarter: 2012Q2

REPORT INFORMATION
  Report Type: 
  Country: None (occurrence: None)
  Receive Date: 20120411
  Receipt Date: 20120402
  Transmission Date: 20120825
  Serious: Yes (Other)
  Sender: FDA-Public Use
  Company Number: JPI-P-020605

PATIENT
  Age: 42 Year
  Sex: Male
  Weight: 113.3993 kg

DRUGS (5)
  1. XYREM [Suspect]
     Indication: NARCOLEPSY
     Dosage: 4.5 GM (2.25 GM, 2 IN 1 D), ORAL (TIRATING DOSE), ORAL 6 GM (3GM, 2 IN 1 D), ORAL
     Route: 047
     Dates: start: 20100827
  2. XYREM [Suspect]
     Indication: NARCOLEPSY
     Dosage: 4.5 GM (2.25 GM, 2 IN 1 D), ORAL (TIRATING DOSE), ORAL 6 GM (3GM, 2 IN 1 D), ORAL
     Route: 047
     Dates: start: 20111116, end: 20120101
  3. FLUOROURACIL, EPIRUBICIN, AND CYCLOPHOSPHAMIDE (FEC) PLUS PACLITAXEL [Concomitant]
  4. TOPIRAMATE [Concomitant]
  5. ARMODAFINIL [Concomitant]

REACTIONS (2)
  - LUMBAR RADICULOPATHY [None]
  - LUMBAR SPINE FLATTENING [None]
